FAERS Safety Report 20924236 (Version 2)
Quarter: 2022Q3

REPORT INFORMATION
  Report Type: Report from Study
  Country: DE (occurrence: None)
  Receive Date: 20220607
  Receipt Date: 20220718
  Transmission Date: 20221027
  Serious: Yes (Hospitalization)
  Sender: FDA-Public Use
  Company Number: DE-Merck Healthcare KGaA-9326775

PATIENT
  Age: 46 Year
  Sex: Female

DRUGS (7)
  1. REBIF [Suspect]
     Active Substance: INTERFERON BETA-1A
     Indication: Multiple sclerosis
     Dosage: REBIF THERAPY START DATE 2005 OR 2006
     Route: 058
  2. PROGESTERONE [Concomitant]
     Active Substance: PROGESTERONE
     Indication: Progesterone decreased
  3. PFIZER-BIONTECH COVID-19 VACCINE [Concomitant]
     Active Substance: TOZINAMERAN
     Indication: COVID-19 immunisation
     Dosage: FIRST TIME
  4. PFIZER-BIONTECH COVID-19 VACCINE [Concomitant]
     Active Substance: TOZINAMERAN
     Dosage: SECOND TIME
  5. PFIZER-BIONTECH COVID-19 VACCINE [Concomitant]
     Active Substance: TOZINAMERAN
     Dosage: THIRD TIME
  6. PFIZER-BIONTECH COVID-19 VACCINE [Concomitant]
     Active Substance: TOZINAMERAN
     Dosage: FOURTH TIME
  7. PFIZER-BIONTECH COVID-19 VACCINE [Concomitant]
     Active Substance: TOZINAMERAN
     Dosage: BOOSTER VACCINATION
     Dates: start: 202203

REACTIONS (4)
  - Endometriosis [Unknown]
  - Uterine leiomyoma [Unknown]
  - Procedural pain [Unknown]
  - Product dose omission issue [Recovered/Resolved]
